FAERS Safety Report 9057206 (Version 2)
Quarter: 2013Q1

REPORT INFORMATION
  Report Type: Spontaneous
  Country: CZ (occurrence: CZ)
  Receive Date: 20130131
  Receipt Date: 20130213
  Transmission Date: 20140127
  Serious: Yes (Other)
  Sender: FDA-Public Use
  Company Number: CZ-JNJFOC-20130112290

PATIENT
  Sex: Female

DRUGS (2)
  1. DOXORUBICIN [Suspect]
     Indication: ADENOCARCINOMA OF THE CERVIX
     Route: 042
  2. CISPLATIN [Suspect]
     Indication: ADENOCARCINOMA OF THE CERVIX
     Route: 065

REACTIONS (3)
  - Nephropathy toxic [Unknown]
  - Haematotoxicity [Unknown]
  - Off label use [Unknown]
